FAERS Safety Report 6852397-0 (Version None)
Quarter: 2010Q3

REPORT INFORMATION
  Report Type: 
  Country: None (occurrence: None)
  Receive Date: 20100717
  Receipt Date: 20071112
  Transmission Date: 20110219
  Serious: No
  Sender: FDA-Public Use
  Company Number: US-PFIZER INC-2007096955

PATIENT
  Sex: Female
  Weight: 111.4 kg

DRUGS (13)
  1. CHANTIX [Suspect]
     Indication: SMOKING CESSATION THERAPY
     Route: 048
     Dates: start: 20071029
  2. HUMALOG [Concomitant]
  3. NOVORAPID [Concomitant]
  4. MONTELUKAST SODIUM [Concomitant]
  5. ADVAIR DISKUS 100/50 [Concomitant]
  6. EFFEXOR XR [Concomitant]
  7. LEXAPRO [Concomitant]
  8. LYRICA [Concomitant]
  9. ALEVE (CAPLET) [Concomitant]
  10. PROTONIX [Concomitant]
  11. ZANTAC [Concomitant]
  12. ZYRTEC [Concomitant]
  13. DRUG, UNSPECIFIED [Concomitant]

REACTIONS (2)
  - NAUSEA [None]
  - VOMITING [None]
